FAERS Safety Report 10050061 (Version 2)
Quarter: 2014Q2

REPORT INFORMATION
  Report Type: Spontaneous
  Country: US (occurrence: US)
  Receive Date: 20140401
  Receipt Date: 20140429
  Transmission Date: 20141212
  Serious: Yes (Other)
  Sender: FDA-Public Use
  Company Number: US-JNJFOC-20140315134

PATIENT
  Sex: Female
  Weight: 58.97 kg

DRUGS (2)
  1. TOPAMAX [Suspect]
     Indication: CONVULSION
     Route: 048
  2. LAMICTAL [Suspect]
     Indication: CONVULSION
     Route: 048
     Dates: start: 2007

REACTIONS (7)
  - Macular degeneration [Not Recovered/Not Resolved]
  - Drug ineffective [Recovered/Resolved]
  - Osteopenia [Unknown]
  - Cardiomyopathy [Not Recovered/Not Resolved]
  - Eye injury [Unknown]
  - Impaired healing [Unknown]
  - Visual impairment [Unknown]
